FAERS Safety Report 17434324 (Version 1)
Quarter: 2020Q1

REPORT INFORMATION
  Report Type: Spontaneous
  Country: US (occurrence: US)
  Receive Date: 20200203
  Receipt Date: 20200203
  Transmission Date: 20200409
  Serious: No
  Sender: FDA-Public Use
  Company Number: None

PATIENT
  Age: 76 Year
  Sex: Male
  Weight: 89 kg

DRUGS (1)
  1. BRIMONIDINE/BRINZOLAMIDE [Suspect]
     Active Substance: BRIMONIDINE TARTRATE\BRINZOLAMIDE
     Route: 047
     Dates: start: 20191205, end: 20191230

REACTIONS (4)
  - Eye pain [None]
  - Eye swelling [None]
  - Vision blurred [None]
  - Ocular hyperaemia [None]

NARRATIVE: CASE EVENT DATE: 20191205
